FAERS Safety Report 8058721-8 (Version None)
Quarter: 2012Q1

REPORT INFORMATION
  Report Type: 
  Country: None (occurrence: None)
  Receive Date: 20120113
  Receipt Date: 20120110
  Transmission Date: 20120608
  Serious: Yes (Death)
  Sender: FDA-Public Use
  Company Number: 1000026973

PATIENT
  Age: 18 Year
  Sex: Female

DRUGS (4)
  1. DILTIAZEM HYDROCHLORIDE [Suspect]
  2. METFORMIN HCL [Suspect]
  3. PREGABALIN [Suspect]
  4. ESOMEPRAZOLE MAGNESIUM [Suspect]

REACTIONS (1)
  - COMPLETED SUICIDE [None]
